FAERS Safety Report 5538167-4 (Version None)
Quarter: 2007Q4

REPORT INFORMATION
  Report Type: 
  Country: None (occurrence: None)
  Receive Date: 20071207
  Receipt Date: 20071128
  Transmission Date: 20080405
  Serious: Yes (Other)
  Sender: FDA-Public Use
  Company Number: BR-PFIZER INC-2007101610

PATIENT
  Sex: Female
  Weight: 59 kg

DRUGS (4)
  1. CHAMPIX [Suspect]
     Indication: TOBACCO USER
     Route: 048
     Dates: start: 20071121, end: 20071125
  2. RIVOTRIL [Concomitant]
     Dosage: TEXT:0.5
     Route: 048
  3. TOFRANIL [Concomitant]
     Dosage: TEXT:50MG
     Route: 048
  4. PROPRANOLOL [Concomitant]
     Dosage: TEXT:40MG
     Route: 048

REACTIONS (3)
  - ABDOMINAL PAIN [None]
  - HAEMATEMESIS [None]
  - HAEMATOCHEZIA [None]
